FAERS Safety Report 4865593-9 (Version None)
Quarter: 2005Q4

REPORT INFORMATION
  Report Type: 
  Country: None (occurrence: None)
  Receive Date: 20051220
  Receipt Date: 20051220
  Transmission Date: 20060501
  Serious: No
  Sender: FDA-Public Use
  Company Number: None

PATIENT
  Age: 66 Year
  Sex: Female
  Weight: 81.6475 kg

DRUGS (4)
  1. AVASTIN [Suspect]
     Indication: MACULAR DEGENERATION
     Dosage: 1.25 MG INTRAVITREAL
     Route: 050
     Dates: start: 20050803
  2. AVASTIN [Suspect]
     Indication: MACULAR DEGENERATION
     Dosage: 1.25 MG INTRAVITREAL
     Route: 050
     Dates: start: 20050831
  3. AVASTIN [Suspect]
     Indication: MACULAR DEGENERATION
     Dosage: 1.25 MG INTRAVITREAL
     Route: 050
     Dates: start: 20050928
  4. AVASTIN [Suspect]
     Indication: MACULAR DEGENERATION
     Dosage: 1.25 MG INTRAVITREAL
     Route: 050
     Dates: start: 20051102

REACTIONS (6)
  - EPISCLERITIS [None]
  - EYE PAIN [None]
  - INFLAMMATION [None]
  - IRITIS [None]
  - OCULAR HYPERAEMIA [None]
  - VITREOUS DISORDER [None]
